APPROVED DRUG PRODUCT: AMMONIUM LACTATE
Active Ingredient: AMMONIUM LACTATE
Strength: EQ 12% BASE
Dosage Form/Route: CREAM;TOPICAL
Application: A075774 | Product #001 | TE Code: AB
Applicant: PADAGIS ISRAEL PHARMACEUTICALS LTD
Approved: May 1, 2002 | RLD: No | RS: No | Type: RX